FAERS Safety Report 7418969-X (Version None)
Quarter: 2011Q2

REPORT INFORMATION
  Report Type: 
  Country: None (occurrence: None)
  Receive Date: 20110415
  Receipt Date: 20110404
  Transmission Date: 20111010
  Serious: Yes (Hospitalization)
  Sender: FDA-Public Use
  Company Number: US-ELI_LILLY_AND_COMPANY-US201012002009

PATIENT
  Sex: Female
  Weight: 41.723 kg

DRUGS (8)
  1. LEVOTHYROXINE SODIUM [Concomitant]
  2. FORTEO [Suspect]
     Indication: OSTEOPOROSIS
     Dosage: 20 UG, DAILY (1/D)
     Route: 058
     Dates: start: 20100901
  3. CALCIUM [Concomitant]
  4. DEMECLOCYCLINE HCL [Concomitant]
  5. ASPIRIN [Concomitant]
  6. TRIPTYLIN [Concomitant]
  7. PLAVIX [Concomitant]
  8. VITAMIN D [Concomitant]

REACTIONS (1)
  - URINARY TRACT INFECTION [None]
